FAERS Safety Report 24887375 (Version 1)
Quarter: 2025Q1

REPORT INFORMATION
  Report Type: Spontaneous
  Country: BE (occurrence: BE)
  Receive Date: 20250127
  Receipt Date: 20250127
  Transmission Date: 20250409
  Serious: Yes (Other)
  Sender: Haleon PLC
  Company Number: BE-JNJFOC-20240721498

PATIENT
  Sex: Male

DRUGS (2)
  1. NICORETTE MINT [Suspect]
     Active Substance: NICOTINE
     Indication: Product used for unknown indication
     Route: 048
  2. NICORETTE MINT [Suspect]
     Active Substance: NICOTINE
     Route: 048

REACTIONS (3)
  - Foreign body in throat [Recovered/Resolved]
  - Product contamination physical [Unknown]
  - Cough [Recovered/Resolved]
